FAERS Safety Report 4708811-X (Version None)
Quarter: 2005Q3

REPORT INFORMATION
  Report Type: 
  Country: None (occurrence: None)
  Receive Date: 20050705
  Receipt Date: 20050627
  Transmission Date: 20060218
  Serious: Yes (Hospitalization, Other)
  Sender: FDA-Public Use
  Company Number: 2005-03-1490

PATIENT
  Age: 58 Year
  Sex: Male
  Weight: 60 kg

DRUGS (29)
  1. REBETOL [Suspect]
     Indication: HEPATITIS C VIRUS
     Dosage: SEE IMAGE
     Route: 048
     Dates: end: 20040706
  2. REBETOL [Suspect]
     Indication: ORGAN TRANSPLANT
     Dosage: SEE IMAGE
     Route: 048
     Dates: end: 20040706
  3. REBETOL [Suspect]
     Indication: HEPATITIS C VIRUS
     Dosage: SEE IMAGE
     Route: 048
     Dates: start: 20040824, end: 20041109
  4. REBETOL [Suspect]
     Indication: ORGAN TRANSPLANT
     Dosage: SEE IMAGE
     Route: 048
     Dates: start: 20040824, end: 20041109
  5. REBETOL [Suspect]
     Indication: HEPATITIS C VIRUS
     Dosage: SEE IMAGE
     Route: 048
     Dates: start: 20040501, end: 20050501
  6. REBETOL [Suspect]
     Indication: ORGAN TRANSPLANT
     Dosage: SEE IMAGE
     Route: 048
     Dates: start: 20040501, end: 20050501
  7. REBETOL [Suspect]
     Indication: HEPATITIS C VIRUS
     Dosage: SEE IMAGE
     Route: 048
     Dates: start: 20050222, end: 20050501
  8. REBETOL [Suspect]
     Indication: ORGAN TRANSPLANT
     Dosage: SEE IMAGE
     Route: 048
     Dates: start: 20050222, end: 20050501
  9. REBETOL [Suspect]
     Indication: HEPATITIS C VIRUS
     Dosage: SEE IMAGE
     Route: 048
     Dates: start: 20040501
  10. REBETOL [Suspect]
     Indication: ORGAN TRANSPLANT
     Dosage: SEE IMAGE
     Route: 048
     Dates: start: 20040501
  11. INTRON A [Suspect]
     Indication: HEPATITIS C VIRUS
     Dosage: SEE IMAGE
     Route: 030
     Dates: start: 20040706, end: 20040906
  12. INTRON A [Suspect]
     Indication: ORGAN TRANSPLANT
     Dosage: SEE IMAGE
     Route: 030
     Dates: start: 20040706, end: 20040906
  13. INTRON A [Suspect]
     Indication: HEPATITIS C VIRUS
     Dosage: SEE IMAGE
     Route: 030
     Dates: start: 20040921, end: 20041109
  14. INTRON A [Suspect]
     Indication: ORGAN TRANSPLANT
     Dosage: SEE IMAGE
     Route: 030
     Dates: start: 20040921, end: 20041109
  15. INTRON A [Suspect]
     Indication: HEPATITIS C VIRUS
     Dosage: SEE IMAGE
     Route: 030
     Dates: start: 20040501, end: 20050501
  16. INTRON A [Suspect]
     Indication: ORGAN TRANSPLANT
     Dosage: SEE IMAGE
     Route: 030
     Dates: start: 20040501, end: 20050501
  17. INTRON A [Suspect]
     Indication: HEPATITIS C VIRUS
     Dosage: SEE IMAGE
     Route: 030
     Dates: start: 20050414, end: 20050501
  18. INTRON A [Suspect]
     Indication: ORGAN TRANSPLANT
     Dosage: SEE IMAGE
     Route: 030
     Dates: start: 20050414, end: 20050501
  19. INTRON A [Suspect]
     Indication: HEPATITIS C VIRUS
     Dosage: SEE IMAGE
     Route: 030
     Dates: start: 20040501
  20. INTRON A [Suspect]
     Indication: ORGAN TRANSPLANT
     Dosage: SEE IMAGE
     Route: 030
     Dates: start: 20040501
  21. INTRON A [Suspect]
     Indication: HEPATITIS C VIRUS
     Dosage: SEE IMAGE
     Route: 030
     Dates: start: 20050222
  22. INTRON A [Suspect]
     Indication: ORGAN TRANSPLANT
     Dosage: SEE IMAGE
     Route: 030
     Dates: start: 20050222
  23. PROGRAF TABLETS [Concomitant]
  24. MEDROL [Concomitant]
  25. PEGASYS [Suspect]
     Indication: HEPATITIS C VIRUS
     Dosage: 180 MCG SUBCUTANEOUS
     Route: 058
     Dates: start: 20040913, end: 20040913
  26. PEGASYS [Suspect]
     Indication: ORGAN TRANSPLANT
     Dosage: 180 MCG SUBCUTANEOUS
     Route: 058
     Dates: start: 20040913, end: 20040913
  27. ASPIRIN [Concomitant]
  28. OMEPRAZOLE [Concomitant]
  29. INSULIN HUMAN INJECTABLE SOLUTION [Concomitant]

REACTIONS (7)
  - ANAEMIA [None]
  - CYTOMEGALOVIRUS INFECTION [None]
  - DEPRESSIVE SYMPTOM [None]
  - DIABETIC RETINOPATHY [None]
  - HYPERTHERMIA [None]
  - VISION BLURRED [None]
  - VISUAL ACUITY REDUCED [None]
